FAERS Safety Report 9498199 (Version 1)
Quarter: 2013Q3

REPORT INFORMATION
  Report Type: Spontaneous
  Country: US (occurrence: None)
  Receive Date: 20130903
  Receipt Date: 20130903
  Transmission Date: 20140515
  Serious: Yes (Other)
  Sender: FDA-Public Use
  Company Number: None

PATIENT
  Age: 72 Year
  Sex: Female
  Weight: 70 kg

DRUGS (4)
  1. AMLODIPINE [Suspect]
  2. NICORANDIL [Concomitant]
  3. CALCIUM TABLET [Concomitant]
  4. METFORMIN [Concomitant]

REACTIONS (1)
  - Oedema peripheral [None]
